FAERS Safety Report 17318029 (Version 1)
Quarter: 2020Q1

REPORT INFORMATION
  Report Type: Spontaneous
  Country: US (occurrence: US)
  Receive Date: 20200124
  Receipt Date: 20200124
  Transmission Date: 20200409
  Serious: Yes (Death)
  Sender: FDA-Public Use
  Company Number: US-ASTRAZENECA-2020SE11878

PATIENT
  Age: 166 Day
  Sex: Female

DRUGS (1)
  1. SYNAGIS [Suspect]
     Active Substance: PALIVIZUMAB
     Indication: ATRIAL SEPTAL DEFECT
     Route: 030
     Dates: start: 20191203, end: 20200118

REACTIONS (1)
  - Death [Fatal]

NARRATIVE: CASE EVENT DATE: 20200118
